FAERS Safety Report 4426804-7 (Version None)
Quarter: 2004Q3

REPORT INFORMATION
  Report Type: 
  Country: None (occurrence: None)
  Receive Date: 20040816
  Receipt Date: 20040802
  Transmission Date: 20050211
  Serious: Yes (Hospitalization)
  Sender: FDA-Public Use
  Company Number: US-GLAXOSMITHKLINE-A0520535A

PATIENT
  Sex: Male

DRUGS (2)
  1. ZIAGEN [Suspect]
     Indication: ILL-DEFINED DISORDER
     Route: 048
     Dates: start: 20020101, end: 20020101
  2. NO CONCURRENT MEDICATION [Concomitant]

REACTIONS (3)
  - PHARMACEUTICAL PRODUCT COMPLAINT [None]
  - SKIN NECROSIS [None]
  - STEVENS-JOHNSON SYNDROME [None]
